FAERS Safety Report 11312127 (Version 1)
Quarter: 2015Q3

REPORT INFORMATION
  Report Type: Spontaneous
  Country: None (occurrence: None)
  Receive Date: 20150724
  Receipt Date: 20150724
  Transmission Date: 20151125
  Serious: Yes (Hospitalization)
  Sender: FDA-Public Use
  Company Number: None

PATIENT
  Age: 48 Year
  Sex: Female
  Weight: 91.9 kg

DRUGS (2)
  1. GEMCITABINE HYDROCHLORIDE. [Suspect]
     Active Substance: GEMCITABINE HYDROCHLORIDE
     Dates: end: 20150513
  2. TAXOTERE [Suspect]
     Active Substance: DOCETAXEL
     Dates: end: 20150513

REACTIONS (3)
  - Thrombocytopenia [None]
  - Anaemia [None]
  - Peau d^orange [None]

NARRATIVE: CASE EVENT DATE: 20150521
